FAERS Safety Report 5310462-3 (Version None)
Quarter: 2007Q2

REPORT INFORMATION
  Report Type: 
  Country: None (occurrence: None)
  Receive Date: 20070427
  Receipt Date: 20070419
  Transmission Date: 20071010
  Serious: Yes (Other)
  Sender: FDA-Public Use
  Company Number: BR-PFIZER INC-2007032060

PATIENT
  Sex: Female
  Weight: 45 kg

DRUGS (3)
  1. FRONTAL [Suspect]
     Indication: ANXIETY
     Dosage: FREQ:INTERVAL: EVERYDAY
     Route: 048
  2. CYMBALTA [Concomitant]
     Dosage: DAILY DOSE:60MG
     Route: 048
  3. ZYPREXA [Concomitant]
     Dosage: DAILY DOSE:2.5MG
     Route: 048

REACTIONS (7)
  - CHEST PAIN [None]
  - DEPRESSION [None]
  - DRUG INEFFECTIVE [None]
  - FEAR [None]
  - PANIC REACTION [None]
  - SURGERY [None]
  - TACHYCARDIA [None]
